FAERS Safety Report 6896785-5 (Version None)
Quarter: 2010Q3

REPORT INFORMATION
  Report Type: 
  Country: None (occurrence: None)
  Receive Date: 20100802
  Receipt Date: 20070224
  Transmission Date: 20110219
  Serious: No
  Sender: FDA-Public Use
  Company Number: US-PFIZER INC-2007004108

PATIENT
  Sex: Male
  Weight: 88.5 kg

DRUGS (16)
  1. LYRICA [Suspect]
     Indication: NEUROPATHY PERIPHERAL
     Route: 048
     Dates: start: 20070106, end: 20070109
  2. THIOCTIC ACID [Concomitant]
  3. EVENING PRIMROSE OIL [Concomitant]
  4. FOLIC ACID [Concomitant]
  5. HUMALOG [Concomitant]
  6. INSULIN DETEMIR [Concomitant]
  7. PANCREASE [Concomitant]
  8. NEORAL [Concomitant]
  9. RANITIDINE [Concomitant]
  10. VITAMIN A [Concomitant]
  11. CENTRUM SILVER [Concomitant]
  12. CELL CEPT [Concomitant]
     Dates: start: 20051213
  13. BACTRIM [Concomitant]
     Dates: start: 20051213
  14. CADUET [Concomitant]
  15. CALCIUM [Concomitant]
  16. VITAMIN D [Concomitant]

REACTIONS (4)
  - CONJUNCTIVAL HAEMORRHAGE [None]
  - EYE HAEMORRHAGE [None]
  - OCULAR HYPERAEMIA [None]
  - VITREOUS FLOATERS [None]
